FAERS Safety Report 5266130-X (Version None)
Quarter: 2007Q1

REPORT INFORMATION
  Report Type: 
  Country: None (occurrence: None)
  Receive Date: 20070315
  Receipt Date: 20070307
  Transmission Date: 20070707
  Serious: Yes (Other)
  Sender: FDA-Public Use
  Company Number: US-ROCHE-486132

PATIENT
  Age: 59 Year
  Sex: Male

DRUGS (2)
  1. XELODA [Suspect]
     Dosage: THE PATIENT'S XELODA ORAL DOSE WAS 2000 MG TWICE A DAY FOR 7 DAYS, EVERY 14 DAYS.
     Route: 048
  2. OXALIPLATIN [Suspect]
     Route: 065

REACTIONS (1)
  - STEVENS-JOHNSON SYNDROME [None]
